FAERS Safety Report 5821406-X (Version None)
Quarter: 2008Q3

REPORT INFORMATION
  Report Type: 
  Country: None (occurrence: None)
  Receive Date: 20080721
  Receipt Date: 20080715
  Transmission Date: 20090109
  Serious: Yes (Death)
  Sender: FDA-Public Use
  Company Number: 163-21880-08061082

PATIENT
  Age: 79 Year
  Sex: Male

DRUGS (2)
  1. REVLIMID [Suspect]
     Indication: MULTIPLE MYELOMA
     Dosage: 10 MG, DAYS 1-21, ORAL, 25 MG, 1 IN 1 D, ORAL
     Route: 048
     Dates: start: 20080114, end: 20080201
  2. REVLIMID [Suspect]
     Indication: MULTIPLE MYELOMA
     Dosage: 10 MG, DAYS 1-21, ORAL, 25 MG, 1 IN 1 D, ORAL
     Route: 048
     Dates: start: 20080204, end: 20080401

REACTIONS (3)
  - DISEASE PROGRESSION [None]
  - INFECTION [None]
  - MULTIPLE MYELOMA [None]
